FAERS Safety Report 17092766 (Version 2)
Quarter: 2019Q4

REPORT INFORMATION
  Report Type: Spontaneous
  Country: BR (occurrence: BR)
  Receive Date: 20191129
  Receipt Date: 20191219
  Transmission Date: 20200122
  Serious: Yes (Hospitalization, Other)
  Sender: FDA-Public Use
  Company Number: BR-GLAXOSMITHKLINE-BR2019GSK098082

PATIENT
  Sex: Female

DRUGS (4)
  1. RELVAR ELLIPTA [Suspect]
     Active Substance: FLUTICASONE FUROATE\VILANTEROL TRIFENATATE
     Indication: ASTHMA
     Dosage: UNK UNK, QD
  2. NUCALA [Suspect]
     Active Substance: MEPOLIZUMAB
     Indication: ASTHMA
     Dosage: 100 MG, Z MONTHLY
     Dates: start: 20190107
  3. SYMBICORT [Suspect]
     Active Substance: BUDESONIDE\FORMOTEROL FUMARATE DIHYDRATE
     Indication: PRODUCT USED FOR UNKNOWN INDICATION
     Dosage: UNK UNK, BID
  4. AEROLIN [Suspect]
     Active Substance: ALBUTEROL
     Indication: PRODUCT USED FOR UNKNOWN INDICATION
     Dosage: 4 DF (JETS)

REACTIONS (12)
  - Bronchitis [Unknown]
  - Asthma [Unknown]
  - Fatigue [Unknown]
  - Gastric disorder [Unknown]
  - Asthmatic crisis [Unknown]
  - Dyspnoea [Unknown]
  - Product availability issue [Unknown]
  - Intentional dose omission [Unknown]
  - Abdominal distension [Unknown]
  - Feeling abnormal [Unknown]
  - Malaise [Unknown]
  - Secretion discharge [Unknown]
